FAERS Safety Report 9438700 (Version 1)
Quarter: 2013Q3

REPORT INFORMATION
  Report Type: Spontaneous
  Country: DE (occurrence: DE)
  Receive Date: 20130802
  Receipt Date: 20130802
  Transmission Date: 20140515
  Serious: Yes (Hospitalization, Other)
  Sender: FDA-Public Use
  Company Number: DE-TEVA-421128GER

PATIENT
  Age: 1 Day
  Sex: Male

DRUGS (4)
  1. FENTANYL [Suspect]
     Route: 064
  2. NOVAMIN [Concomitant]
     Route: 064
  3. AMITRIPTYLIN [Concomitant]
     Route: 064
  4. GABAPENTIN [Concomitant]
     Route: 064

REACTIONS (5)
  - Acute respiratory failure [Recovered/Resolved]
  - Convulsion neonatal [Recovered/Resolved]
  - Drug withdrawal syndrome neonatal [Recovered/Resolved]
  - Hypocalcaemia [Recovered/Resolved]
  - Metabolic acidosis [Recovered/Resolved]
